FAERS Safety Report 5487779-5 (Version None)
Quarter: 2007Q3

REPORT INFORMATION
  Report Type: 
  Country: None (occurrence: None)
  Receive Date: 20070927
  Receipt Date: 20070730
  Transmission Date: 20080115
  Serious: Yes (Disabling)
  Sender: FDA-Public Use
  Company Number: A03200704957

PATIENT
  Age: 70 Year
  Sex: Female
  Weight: 64.8644 kg

DRUGS (4)
  1. AMBIEN [Suspect]
     Indication: INSOMNIA
     Dosage: 12.5 MG HS - ORAL
     Route: 048
     Dates: start: 20070525, end: 20070527
  2. LITHIUM CARBONATE [Concomitant]
  3. LIOTHYRONINE SODIUM [Concomitant]
  4. NATURAL VITAMINS [Concomitant]

REACTIONS (2)
  - ANXIETY [None]
  - DEPRESSION [None]
